FAERS Safety Report 7365638-0 (Version None)
Quarter: 2011Q1

REPORT INFORMATION
  Report Type: 
  Country: None (occurrence: None)
  Receive Date: 20110316
  Receipt Date: 20110316
  Transmission Date: 20110831
  Serious: Yes (Other)
  Sender: FDA-Public Use
  Company Number: None

PATIENT
  Sex: Male

DRUGS (2)
  1. SIMVASTATIN [Suspect]
     Indication: CORONARY ARTERY DISEASE
     Dosage: 20MG QD PO  ; 40MG QD PO
     Route: 048
     Dates: start: 20010901
  2. SIMVASTATIN [Suspect]
     Indication: DYSLIPIDAEMIA
     Dosage: 20MG QD PO  ; 40MG QD PO
     Route: 048
     Dates: start: 20010901

REACTIONS (1)
  - MYALGIA [None]
